FAERS Safety Report 12717316 (Version 14)
Quarter: 2018Q2

REPORT INFORMATION
  Report Type: Spontaneous
  Country: BR (occurrence: BR)
  Receive Date: 20160906
  Receipt Date: 20180502
  Transmission Date: 20180711
  Serious: Yes (Other)
  Sender: FDA-Public Use
  Company Number: BR-GLAXOSMITHKLINE-BR2016GSK033089

PATIENT
  Sex: Female
  Weight: 58 kg

DRUGS (11)
  1. REUQUINOL (HYDROXYCHLOROQUINE SULFATE) [Concomitant]
     Indication: PRODUCT USED FOR UNKNOWN INDICATION
     Dosage: UNK
  2. LEVOID [Concomitant]
     Active Substance: LEVOTHYROXINE
     Indication: PRODUCT USED FOR UNKNOWN INDICATION
     Dosage: 125 MG, UNK
  3. CODEINE [Concomitant]
     Active Substance: CODEINE
     Indication: PRODUCT USED FOR UNKNOWN INDICATION
     Dosage: UNK
  4. CALCIUM [Concomitant]
     Active Substance: CALCIUM
     Indication: PRODUCT USED FOR UNKNOWN INDICATION
     Dosage: UNK
  5. ASPIRIN. [Concomitant]
     Active Substance: ASPIRIN
     Indication: PRODUCT USED FOR UNKNOWN INDICATION
     Dosage: UNK
  6. BENLYSTA [Suspect]
     Active Substance: BELIMUMAB
     Dosage: 690 MG, Z
     Route: 042
  7. PREDNISONA [Concomitant]
     Active Substance: PREDNISONE
     Dosage: 20 MG, BID
  8. CHLOROQUINE. [Concomitant]
     Active Substance: CHLOROQUINE
     Indication: PRODUCT USED FOR UNKNOWN INDICATION
     Dosage: UNK
  9. BENLYSTA [Suspect]
     Active Substance: BELIMUMAB
     Indication: SYSTEMIC LUPUS ERYTHEMATOSUS
     Dosage: 600 MG, Z
     Route: 042
     Dates: start: 20160302
  10. BENLYSTA [Suspect]
     Active Substance: BELIMUMAB
     Dosage: 600 MG, Z
     Route: 042
  11. PREDNISONA [Concomitant]
     Active Substance: PREDNISONE
     Indication: PRODUCT USED FOR UNKNOWN INDICATION
     Dosage: 5 MG, QD

REACTIONS (14)
  - Incorrect dose administered [Recovered/Resolved]
  - Drug dose omission [Not Recovered/Not Resolved]
  - Breast cyst [Unknown]
  - Treatment noncompliance [Recovered/Resolved]
  - Inappropriate schedule of drug administration [Recovered/Resolved]
  - Nasal injury [Unknown]
  - Intentional product misuse [Recovered/Resolved]
  - Weight decreased [Recovered/Resolved]
  - Circumstance or information capable of leading to medication error [Unknown]
  - Overdose [Recovered/Resolved]
  - Pneumonia [Unknown]
  - Systemic lupus erythematosus [Recovered/Resolved]
  - Pruritus [Recovered/Resolved]
  - Underdose [Recovered/Resolved]
